FAERS Safety Report 6394162-7 (Version None)
Quarter: 2009Q4

REPORT INFORMATION
  Report Type: 
  Country: None (occurrence: None)
  Receive Date: 20091008
  Receipt Date: 20091001
  Transmission Date: 20100525
  Serious: Yes (Life-Threatening, Hospitalization, Other)
  Sender: FDA-Public Use
  Company Number: JP-ABBOTT-09P-087-0587857-00

PATIENT
  Sex: Female

DRUGS (6)
  1. HUMIRA [Suspect]
     Indication: RHEUMATOID ARTHRITIS
     Route: 058
     Dates: start: 20090402, end: 20090625
  2. METHOTREXATE [Suspect]
     Indication: RHEUMATOID ARTHRITIS
     Dates: start: 20061212, end: 20090709
  3. SALAZOSULFAPYRIDINE [Concomitant]
     Indication: RHEUMATOID ARTHRITIS
     Dosage: 1 GM DAILY DOSE
     Route: 048
     Dates: end: 20090713
  4. PREDNISOLONE [Concomitant]
     Indication: RHEUMATOID ARTHRITIS
     Dosage: 10 MG DAILY DOSE
     Route: 048
  5. ALFACALCIDOL [Concomitant]
     Indication: DRUG USE FOR UNKNOWN INDICATION
     Dosage: 0.5 MCG DAILY DOSE
  6. CELECOXIB [Concomitant]
     Indication: RHEUMATOID ARTHRITIS
     Dosage: 200 MG DAILY DOSE
     Dates: end: 20090713

REACTIONS (10)
  - BREAST CANCER RECURRENT [None]
  - CHEST PAIN [None]
  - DELIRIUM [None]
  - METASTASES TO BONE [None]
  - MUSCULOSKELETAL PAIN [None]
  - PANCYTOPENIA [None]
  - PELVIC FRACTURE [None]
  - PELVIC HAEMORRHAGE [None]
  - RESTLESSNESS [None]
  - RIB FRACTURE [None]
